FAERS Safety Report 4292070-9 (Version None)
Quarter: 2004Q1

REPORT INFORMATION
  Report Type: 
  Country: None (occurrence: None)
  Receive Date: 20040210
  Receipt Date: 20040210
  Transmission Date: 20041129
  Serious: Yes (Hospitalization)
  Sender: FDA-Public Use
  Company Number: None

PATIENT
  Age: 77 Year
  Sex: Male
  Weight: 82 kg

DRUGS (9)
  1. TICE BCG [Suspect]
     Indication: BLADDER CANCER
     Dosage: 50 ML DAILY INTRAVESICAL , ONCE WEEKLY X 4 WEEKS
     Route: 043
     Dates: start: 20031222, end: 20040114
  2. CELEXA [Concomitant]
  3. PYRIDIUM [Concomitant]
  4. ASPIRIN [Concomitant]
  5. TRANXENE [Concomitant]
  6. TRAMADONE [Concomitant]
  7. LEVASTIN [Concomitant]
  8. FERRO-FENIDINE [Concomitant]
  9. ACIPHEX [Concomitant]

REACTIONS (2)
  - PANCREATITIS [None]
  - VIRAL INFECTION [None]
